FAERS Safety Report 5714214-1 (Version None)
Quarter: 2008Q2

REPORT INFORMATION
  Report Type: 
  Country: None (occurrence: None)
  Receive Date: 20080423
  Receipt Date: 20080229
  Transmission Date: 20081010
  Serious: No
  Sender: FDA-Public Use
  Company Number: US-KINGPHARMUSA00001-K200800262

PATIENT

DRUGS (4)
  1. SKELAXIN [Suspect]
     Indication: PAIN
     Dosage: 800 MG, SINGLE
     Route: 048
     Dates: start: 20080228, end: 20080228
  2. RELAFEN [Concomitant]
     Dosage: 750 MG, BID
     Dates: start: 20080228, end: 20080228
  3. PROZAC [Concomitant]
     Indication: DEPRESSION
     Dosage: 20 MG, QD
  4. ACIPHEX [Concomitant]

REACTIONS (1)
  - UNRESPONSIVE TO STIMULI [None]
